FAERS Safety Report 7672190-9 (Version None)
Quarter: 2011Q3

REPORT INFORMATION
  Report Type: 
  Country: None (occurrence: None)
  Receive Date: 20110809
  Receipt Date: 20110805
  Transmission Date: 20111222
  Serious: Yes (Other)
  Sender: FDA-Public Use
  Company Number: PHHY2011JP60855

PATIENT
  Sex: Male

DRUGS (1)
  1. VOLTAREN [Suspect]
     Dosage: 50 MG DAILY
     Route: 054

REACTIONS (4)
  - DYSKINESIA [None]
  - HAEMATOMA [None]
  - DYSPHONIA [None]
  - MENTAL DISORDER [None]
